FAERS Safety Report 5618847-2 (Version None)
Quarter: 2008Q1

REPORT INFORMATION
  Report Type: 
  Country: None (occurrence: None)
  Receive Date: 20080207
  Receipt Date: 20071022
  Transmission Date: 20080703
  Serious: Yes (Other)
  Sender: FDA-Public Use
  Company Number: CA-PFIZER INC-2007057569

PATIENT
  Age: 57 Year
  Sex: Female

DRUGS (1)
  1. SUTENT [Suspect]
     Indication: RENAL CELL CARCINOMA

REACTIONS (5)
  - CARDIOVASCULAR DISORDER [None]
  - HAEMORRHOIDAL HAEMORRHAGE [None]
  - MUSCULAR WEAKNESS [None]
  - OSTEOARTHRITIS [None]
  - PAIN IN EXTREMITY [None]
